FAERS Safety Report 17328886 (Version 1)
Quarter: 2020Q1

REPORT INFORMATION
  Report Type: Spontaneous
  Country: PT (occurrence: PT)
  Receive Date: 20200127
  Receipt Date: 20200127
  Transmission Date: 20200409
  Serious: Yes (Other)
  Sender: FDA-Public Use
  Company Number: PT-MYLANLABS-2020M1008587

PATIENT
  Age: 68 Year
  Sex: Male

DRUGS (6)
  1. TRIPTORELIN [Concomitant]
     Active Substance: TRIPTORELIN
     Indication: METASTASES TO BONE
     Dosage: UNK
     Route: 065
  2. ZOLEDRONIC ACID [Suspect]
     Active Substance: ZOLEDRONIC ACID
     Indication: METASTASES TO BONE
     Dosage: 4 MG, Q4W (1 INTRAVENOUS ADMINISTRATION FOR 15 MINUTES, EVERY 4 WEEKS)
     Route: 042
  3. ZOLEDRONIC ACID [Suspect]
     Active Substance: ZOLEDRONIC ACID
     Indication: PROSTATIC ADENOMA
  4. CYPROTERONE ACETATE [Concomitant]
     Active Substance: CYPROTERONE ACETATE
     Indication: METASTASES TO BONE
  5. TRIPTORELIN [Concomitant]
     Active Substance: TRIPTORELIN
     Indication: PROSTATIC ADENOMA
  6. CYPROTERONE ACETATE [Concomitant]
     Active Substance: CYPROTERONE ACETATE
     Indication: PROSTATIC ADENOMA
     Dosage: UNK
     Route: 065

REACTIONS (13)
  - Asthenia [Unknown]
  - Metabolic acidosis [Recovered/Resolved]
  - Decreased appetite [Unknown]
  - Anaemia [Unknown]
  - Renal injury [Unknown]
  - Renal tubular necrosis [Recovering/Resolving]
  - Fanconi syndrome acquired [Unknown]
  - Renal tubular acidosis [Recovering/Resolving]
  - Renal tubular dysfunction [Recovering/Resolving]
  - Hypokalaemia [Unknown]
  - Diabetic nephropathy [Unknown]
  - Nephropathy toxic [Unknown]
  - Hypertensive nephropathy [Unknown]

NARRATIVE: CASE EVENT DATE: 20160429
